FAERS Safety Report 8116743-2 (Version None)
Quarter: 2012Q1

REPORT INFORMATION
  Report Type: 
  Country: None (occurrence: None)
  Receive Date: 20120206
  Receipt Date: 20120127
  Transmission Date: 20120608
  Serious: Yes (Other)
  Sender: FDA-Public Use
  Company Number: PHHY2012JP008197

PATIENT
  Age: 81 Year
  Sex: Female

DRUGS (8)
  1. RIVASTIGMINE [Suspect]
     Dosage: 9 MG, DAILY
     Route: 062
     Dates: start: 20111001
  2. PRAVASTATIN SODIUM [Concomitant]
  3. ADALAT [Suspect]
     Dosage: 10 MG, BID
  4. ADENOSINE TRIPHOSPHATE, DISODIUM SALT [Concomitant]
  5. RIVASTIGMINE [Suspect]
     Indication: DEMENTIA ALZHEIMER'S TYPE
     Dosage: 4.5 MG, DAILY
     Route: 062
     Dates: start: 20110912
  6. RIVASTIGMINE [Suspect]
     Dosage: 18 MG, DAILY
     Route: 062
     Dates: start: 20111201, end: 20120126
  7. RIVASTIGMINE [Suspect]
     Dosage: 13.5 MG, DAILY
     Route: 062
     Dates: start: 20111101
  8. DOMPERIDONE [Concomitant]

REACTIONS (2)
  - DERMATITIS [None]
  - INFECTION [None]
